FAERS Safety Report 7458441 (Version 5)
Quarter: 2018Q2

REPORT INFORMATION
  Report Type: Spontaneous
  Country: JP (occurrence: JP)
  Receive Date: 20100708
  Receipt Date: 20180601
  Transmission Date: 20180711
  Serious: Yes (Death, Other)
  Sender: FDA-Public Use
  Company Number: JP-ROCHE-713515

PATIENT
  Age: 84 Year
  Sex: Female
  Weight: 37 kg

DRUGS (6)
  1. ISOVORIN [Concomitant]
     Active Substance: LEUCOVORIN CALCIUM
     Indication: RECTAL CANCER METASTATIC
     Dosage: DOSE INTERVAL UNCERTAINTY
     Route: 041
     Dates: start: 20100318, end: 20100623
  2. ELPLAT [Concomitant]
     Active Substance: OXALIPLATIN
     Indication: RECTAL CANCER METASTATIC
     Route: 041
     Dates: start: 20100318, end: 20100621
  3. ADALAT CC [Concomitant]
     Active Substance: NIFEDIPINE
     Indication: HYPERTENSION
     Route: 048
  4. 5-FU [Concomitant]
     Active Substance: FLUOROURACIL
     Indication: RECTAL CANCER METASTATIC
     Dosage: DOSE INTERVAL UNCERTAINTY
     Route: 041
     Dates: start: 20100318, end: 20100623
  5. AVASTIN [Suspect]
     Active Substance: BEVACIZUMAB
     Indication: RECTAL CANCER METASTATIC
     Route: 041
     Dates: start: 20100621, end: 20100621
  6. BLOPRESS [Concomitant]
     Active Substance: CANDESARTAN CILEXETIL
     Indication: HYPERTENSION
     Route: 048

REACTIONS (4)
  - Aortic aneurysm rupture [Fatal]
  - Pneumonia [Unknown]
  - Tracheal fistula [Fatal]
  - Aortic dissection [Fatal]

NARRATIVE: CASE EVENT DATE: 20100626
